FAERS Safety Report 9462541 (Version 2)
Quarter: 2013Q3

REPORT INFORMATION
  Report Type: Spontaneous
  Country: US (occurrence: US)
  Receive Date: 20130816
  Receipt Date: 20130903
  Transmission Date: 20140515
  Serious: Yes (Other)
  Sender: FDA-Public Use
  Company Number: US-JNJFOC-20130804550

PATIENT
  Age: 25 Year
  Sex: Male
  Weight: 63.5 kg

DRUGS (4)
  1. DEXEDRINE [Concomitant]
     Indication: ATTENTION DEFICIT/HYPERACTIVITY DISORDER
     Dosage: DAILY IN AM
     Route: 048
     Dates: start: 1993
  2. ULTRAM [Suspect]
     Indication: BACK PAIN
     Dosage: 2-3 TIMES A DAY
     Route: 048
  3. ULTRAM [Suspect]
     Indication: BACK PAIN
     Dosage: 4 TIMES A DAY
     Route: 048
  4. VALIUM [Concomitant]
     Indication: ANXIETY
     Dosage: 3 TIMES A DAY
     Route: 048

REACTIONS (7)
  - Post-traumatic neck syndrome [Unknown]
  - Road traffic accident [Unknown]
  - Muscle strain [Unknown]
  - Drug ineffective [Unknown]
  - Pain [Unknown]
  - Muscle strain [Unknown]
  - Intervertebral disc protrusion [Unknown]
